FAERS Safety Report 23090954 (Version 1)
Quarter: 2023Q4

REPORT INFORMATION
  Report Type: Report from Study
  Country: US (occurrence: US)
  Receive Date: 20231020
  Receipt Date: 20231020
  Transmission Date: 20240110
  Serious: Yes (Death)
  Sender: FDA-Public Use
  Company Number: US-ARGENX-2022-ARGX-US001007

PATIENT

DRUGS (1)
  1. VYVGART [Suspect]
     Active Substance: EFGARTIGIMOD ALFA-FCAB
     Indication: Myasthenia gravis
     Dosage: 10 MG/KG
     Route: 042

REACTIONS (21)
  - Respiratory failure [Fatal]
  - Myocardial infarction [Fatal]
  - COVID-19 pneumonia [Fatal]
  - Myasthenia gravis [Fatal]
  - Nasal congestion [Unknown]
  - Joint stiffness [Recovering/Resolving]
  - Vision blurred [Recovered/Resolved]
  - Musculoskeletal discomfort [Recovered/Resolved]
  - Muscle spasms [Recovered/Resolved]
  - Balance disorder [Unknown]
  - Asthenia [Recovering/Resolving]
  - Somnolence [Recovering/Resolving]
  - Toothache [Recovering/Resolving]
  - Malaise [Recovering/Resolving]
  - Dizziness [Unknown]
  - Skin discolouration [Unknown]
  - Cough [Unknown]
  - Abdominal discomfort [Unknown]
  - Breath sounds abnormal [Unknown]
  - Paraesthesia [Recovering/Resolving]
  - Dyspnoea [Recovering/Resolving]

NARRATIVE: CASE EVENT DATE: 20220701
